FAERS Safety Report 15740498 (Version 2)
Quarter: 2019Q1

REPORT INFORMATION
  Report Type: Report from Study
  Country: CA (occurrence: CA)
  Receive Date: 20181219
  Receipt Date: 20190121
  Transmission Date: 20190417
  Serious: Yes (Death)
  Sender: FDA-Public Use
  Company Number: CA-HLSUS-2018-CA-001914

PATIENT
  Age: 55 Year
  Sex: Male

DRUGS (2)
  1. LUVOX [Concomitant]
     Active Substance: FLUVOXAMINE MALEATE
     Dosage: 50 MG DAILY IN DECREASING DOSES
     Route: 048
     Dates: start: 20181029
  2. CLOZARIL [Suspect]
     Active Substance: CLOZAPINE
     Indication: SCHIZOPHRENIA
     Dosage: 150 MG DAILY
     Route: 048
     Dates: start: 20181018, end: 20181128

REACTIONS (3)
  - Faecaloma [Unknown]
  - Sepsis [Unknown]
  - Death [Fatal]

NARRATIVE: CASE EVENT DATE: 20181125
